FAERS Safety Report 19007602 (Version 1)
Quarter: 2021Q1

REPORT INFORMATION
  Report Type: Spontaneous
  Country: CN (occurrence: CN)
  Receive Date: 20210315
  Receipt Date: 20210315
  Transmission Date: 20210420
  Serious: Yes (Other)
  Sender: FDA-Public Use
  Company Number: CN-BAXTER-2021BAX004771

PATIENT
  Age: 44 Year
  Sex: Female
  Weight: 55 kg

DRUGS (13)
  1. 0.9% SODIUM CHLORIDE INJECTION [Suspect]
     Active Substance: SODIUM CHLORIDE
     Indication: MEDICATION DILUTION
     Dosage: FIRST CHEMOTHERAPY, NS + CYCLOPHOSPHAMIDE
     Route: 042
  2. 0.9% SODIUM CHLORIDE INJECTION [Suspect]
     Active Substance: SODIUM CHLORIDE
     Dosage: SECOND CHEMOTHERAPY, NS 45 ML + CYCLOPHOSPHAMIDE 850 MG
     Route: 042
     Dates: start: 20210108, end: 20210108
  3. ENDOXAN [Suspect]
     Active Substance: CYCLOPHOSPHAMIDE
     Indication: BREAST CANCER FEMALE
     Dosage: FIRST CHEMOTHERAPY, CYCLOPHOSPHAMIDE + NS
     Route: 042
  4. ENDOXAN [Suspect]
     Active Substance: CYCLOPHOSPHAMIDE
     Dosage: CYCLOPHOSPHAMIDE + NS (DOSE RE?INTRODUCED)
     Route: 042
  5. ENDOXAN [Suspect]
     Active Substance: CYCLOPHOSPHAMIDE
     Dosage: SECOND CHEMOTHERAPY, CYCLOPHOSPHAMIDE 850 MG + NS 45 ML
     Route: 042
     Dates: start: 20210108, end: 20210108
  6. 0.9% SODIUM CHLORIDE INJECTION [Suspect]
     Active Substance: SODIUM CHLORIDE
     Dosage: NS + EPIRUBICIN HYDROCHLORIDE (DOSE RE?INTRODUCED)
     Route: 041
  7. PHARMORUBICIN [Suspect]
     Active Substance: EPIRUBICIN
     Indication: BREAST CANCER FEMALE
     Dosage: FIRST CHEMOTHERAPY, EPIRUBICIN HYDROCHLORIDE + NS
     Route: 041
  8. PHARMORUBICIN [Suspect]
     Active Substance: EPIRUBICIN
     Dosage: EPIRUBICIN HYDROCHLORIDE + NS (DOSE RE?INTRODUCED)
     Route: 041
  9. 0.9% SODIUM CHLORIDE INJECTION [Suspect]
     Active Substance: SODIUM CHLORIDE
     Dosage: FIRST CHEMOTHERAPY, NS + EPIRUBICIN HYDROCHLORIDE
     Route: 041
  10. 0.9% SODIUM CHLORIDE INJECTION [Suspect]
     Active Substance: SODIUM CHLORIDE
     Dosage: NS + CYCLOPHOSPHAMIDE (DOSE RE?INTRODUCED)
     Route: 042
  11. 0.9% SODIUM CHLORIDE INJECTION [Suspect]
     Active Substance: SODIUM CHLORIDE
     Dosage: SECOND CHEMOTHERAPY, NS 100 ML + EPIRUBICIN HYDROCHLORIDE 130 MG
     Route: 041
     Dates: start: 20210108, end: 20210108
  12. PHARMORUBICIN [Suspect]
     Active Substance: EPIRUBICIN
     Dosage: SECOND CHEMOTHERAPY, EPIRUBICIN HYDROCHLORIDE 130 MG + NS 100 ML
     Route: 041
     Dates: start: 20210108, end: 20210108
  13. AD OL [Concomitant]
     Indication: PRODUCT USED FOR UNKNOWN INDICATION
     Route: 058
     Dates: start: 20210110, end: 20210110

REACTIONS (2)
  - Agranulocytosis [Recovered/Resolved]
  - White blood cell count decreased [Recovered/Resolved]

NARRATIVE: CASE EVENT DATE: 20210114
